FAERS Safety Report 25192733 (Version 2)
Quarter: 2025Q2

REPORT INFORMATION
  Report Type: Spontaneous
  Country: US (occurrence: US)
  Receive Date: 20250414
  Receipt Date: 20250605
  Transmission Date: 20250716
  Serious: No
  Sender: VERTEX
  Company Number: US-VERTEX PHARMACEUTICALS-2025-005555

PATIENT

DRUGS (2)
  1. TRIKAFTA [Suspect]
     Active Substance: ELEXACAFTOR\IVACAFTOR\TEZACAFTOR
     Indication: Cystic fibrosis
     Route: 048
  2. METHADONE [Suspect]
     Active Substance: METHADONE HYDROCHLORIDE
     Indication: Product used for unknown indication
     Route: 065

REACTIONS (9)
  - Memory impairment [Not Recovered/Not Resolved]
  - Constipation [Unknown]
  - Flatulence [Unknown]
  - Gastrostomy tube site complication [Recovered/Resolved]
  - Weight decreased [Unknown]
  - Glucose tolerance impaired [Not Recovered/Not Resolved]
  - Nausea [Unknown]
  - Abdominal distension [Unknown]
  - Decreased appetite [Unknown]
